FAERS Safety Report 8140522-3 (Version None)
Quarter: 2012Q1

REPORT INFORMATION
  Report Type: 
  Country: None (occurrence: None)
  Receive Date: 20120216
  Receipt Date: 20120210
  Transmission Date: 20120608
  Serious: Yes (Hospitalization)
  Sender: FDA-Public Use
  Company Number: US-BAYER-2011-079534

PATIENT
  Age: 30 Year
  Sex: Female
  Weight: 72.562 kg

DRUGS (9)
  1. YASMIN [Suspect]
     Indication: ACNE
  2. ADDERALL 5 [Concomitant]
     Dosage: 5 MG, UNK
     Dates: start: 20070917
  3. METRONIDAZOLE [Concomitant]
     Dosage: 500 MG, UNK
     Dates: start: 20071006
  4. YASMIN [Suspect]
     Indication: PREMENSTRUAL SYNDROME
  5. YASMIN [Suspect]
     Indication: CONTRACEPTION
     Dosage: UNK
     Dates: start: 20040101, end: 20071001
  6. FLUCONAZOLE [Concomitant]
     Dosage: 150 MG, UNK
     Dates: start: 20071009
  7. RESPIRATORY SYSTEM [Concomitant]
     Dosage: 5 MG, UNK
     Dates: start: 20070729
  8. FLUCONAZOLE [Concomitant]
     Dosage: 150 MG, UNK
     Dates: start: 20071023
  9. FLONASE [Concomitant]
     Dosage: 2 SPRAYS IN EACH NOSTRIL DAILY
     Route: 045
     Dates: start: 20071009

REACTIONS (5)
  - PULMONARY EMBOLISM [None]
  - PSYCHOLOGICAL TRAUMA [None]
  - PAIN [None]
  - ANXIETY [None]
  - EMOTIONAL DISTRESS [None]
